FAERS Safety Report 23507245 (Version 1)
Quarter: 2024Q1

REPORT INFORMATION
  Report Type: Spontaneous
  Country: US (occurrence: None)
  Receive Date: 20240209
  Receipt Date: 20240209
  Transmission Date: 20240410
  Serious: Yes (Other)
  Sender: FDA-Public Use
  Company Number: None

PATIENT
  Age: 50 Year
  Sex: Female
  Weight: 54 kg

DRUGS (2)
  1. VICKS NYQUIL [Suspect]
     Active Substance: ACETAMINOPHEN\DEXTROMETHORPHAN HYDROBROMIDE\DOXYLAMINE SUCCINATE
     Indication: Nasopharyngitis
  2. TYLENOL [Suspect]
     Active Substance: ACETAMINOPHEN

REACTIONS (2)
  - Rash pustular [None]
  - Rash pruritic [None]

NARRATIVE: CASE EVENT DATE: 20240208
